FAERS Safety Report 12080803 (Version 1)
Quarter: 2016Q1

REPORT INFORMATION
  Report Type: Spontaneous
  Country: US (occurrence: US)
  Receive Date: 20160216
  Receipt Date: 20160216
  Transmission Date: 20160526
  Serious: Yes (Other)
  Sender: FDA-Public Use
  Company Number: US-BAYER-2016-029695

PATIENT
  Sex: Female

DRUGS (2)
  1. ISONIAZID. [Interacting]
     Active Substance: ISONIAZID
  2. MIRENA [Suspect]
     Active Substance: LEVONORGESTREL
     Dosage: 20 MCG/24HR, CONT
     Route: 015
     Dates: start: 201403

REACTIONS (2)
  - Tuberculosis [None]
  - Drug interaction [None]
